FAERS Safety Report 9437176 (Version 1)
Quarter: 2013Q3

REPORT INFORMATION
  Report Type: Report from Study
  Country: US (occurrence: US)
  Receive Date: 20130802
  Receipt Date: 20130802
  Transmission Date: 20140515
  Serious: Yes (Hospitalization, Other)
  Sender: FDA-Public Use
  Company Number: PHHO2013US006891

PATIENT
  Age: 35 Year
  Sex: Female

DRUGS (7)
  1. GILENYA [Suspect]
     Indication: RELAPSING-REMITTING MULTIPLE SCLEROSIS
     Dosage: DOSE BLINDED
     Route: 048
     Dates: start: 20130226, end: 20130520
  2. RITALINE [Suspect]
     Dosage: 10 MG, TID
     Dates: start: 201207
  3. WELLBUTRIN [Suspect]
     Indication: DEPRESSION
     Dosage: 300 MG, QD
     Dates: start: 20130224, end: 20130520
  4. SYNTHROID [Concomitant]
     Indication: HYPOTHYROIDISM
     Dosage: 0.5 MG, QD
     Dates: start: 201001
  5. TOPAMAX [Concomitant]
     Indication: NEURALGIA
     Dosage: 25 MG, BID
     Dates: start: 201109
  6. OXYBUTYNIN [Concomitant]
     Indication: HYPERTONIC BLADDER
     Dosage: 5 MG, BID
  7. KLONOPIN [Concomitant]
     Dosage: 0.5 MG, UNK
     Route: 048

REACTIONS (1)
  - Convulsion [Recovering/Resolving]
